FAERS Safety Report 15784926 (Version 4)
Quarter: 2019Q2

REPORT INFORMATION
  Report Type: Spontaneous
  Country: US (occurrence: US)
  Receive Date: 20190103
  Receipt Date: 20190524
  Transmission Date: 20190711
  Serious: Yes (Other)
  Sender: FDA-Public Use
  Company Number: US-TEVA-2018-US-993315

PATIENT
  Sex: Male

DRUGS (3)
  1. ACTAVIS CLONAZEPAM [Suspect]
     Active Substance: CLONAZEPAM
     Indication: MUSCULOSKELETAL STIFFNESS
  2. ACTAVIS CLONAZEPAM [Suspect]
     Active Substance: CLONAZEPAM
     Indication: ANXIETY
  3. ACTAVIS CLONAZEPAM [Suspect]
     Active Substance: CLONAZEPAM
     Indication: PAIN
     Dosage: ONLY TAKING 0.5 MG IN THE MORNING, 0.5 MG IN THE AFTERNOON, AND A FULL 1 MG TABLET AT NIGHT BEFORE B
     Route: 065

REACTIONS (8)
  - Neoplasm malignant [Unknown]
  - Drug ineffective [Unknown]
  - Therapeutic response unexpected [Unknown]
  - Cranial nerve injury [Unknown]
  - Tinnitus [Unknown]
  - Dizziness [Unknown]
  - Product substitution issue [Unknown]
  - Product use in unapproved indication [Unknown]
